FAERS Safety Report 6622815-1 (Version None)
Quarter: 2010Q1

REPORT INFORMATION
  Report Type: 
  Country: None (occurrence: None)
  Receive Date: 20100310
  Receipt Date: 20100301
  Transmission Date: 20100710
  Serious: Yes (Other)
  Sender: FDA-Public Use
  Company Number: US-JNJFOC-20100300724

PATIENT
  Age: 60 Year
  Sex: Male

DRUGS (2)
  1. LEVAQUIN [Suspect]
     Indication: SINUSITIS
     Route: 048
  2. CORTISONE [Suspect]
     Indication: PAIN IN EXTREMITY
     Route: 065

REACTIONS (4)
  - IMPAIRED HEALING [None]
  - MYALGIA [None]
  - PROCEDURAL COMPLICATION [None]
  - TENDON RUPTURE [None]
